FAERS Safety Report 16439654 (Version 1)
Quarter: 2019Q3

REPORT INFORMATION
  Report Type: Spontaneous
  Country: US (occurrence: US)
  Receive Date: 20190615
  Receipt Date: 20190615
  Transmission Date: 20191004
  Serious: Yes (Disabling)
  Sender: FDA-Public Use
  Company Number: None

PATIENT
  Age: 39 Year
  Sex: Female

DRUGS (1)
  1. MACROBID [Suspect]
     Active Substance: NITROFURANTOIN\NITROFURANTOIN MONOHYDRATE
     Indication: URINARY TRACT INFECTION
     Dosage: ?          QUANTITY:1 CAPSULE(S);?
     Route: 048
     Dates: start: 20150720, end: 20150727

REACTIONS (14)
  - Influenza like illness [None]
  - Myalgia [None]
  - Joint swelling [None]
  - Oedema [None]
  - Fatigue [None]
  - Confusional state [None]
  - Muscle spasms [None]
  - Disease progression [None]
  - Muscular weakness [None]
  - Bedridden [None]
  - Tendonitis [None]
  - Plantar fasciitis [None]
  - Arthralgia [None]
  - Muscle fatigue [None]

NARRATIVE: CASE EVENT DATE: 20150721
